FAERS Safety Report 9069678 (Version 2)
Quarter: 2013Q1

REPORT INFORMATION
  Report Type: Spontaneous
  Country: US (occurrence: US)
  Receive Date: 20130215
  Receipt Date: 20130219
  Transmission Date: 20140127
  Serious: Yes (Other)
  Sender: FDA-Public Use
  Company Number: US-PFIZER INC-2013054052

PATIENT
  Age: 54 Year
  Sex: Male
  Weight: 113 kg

DRUGS (5)
  1. PRIMATENE [Suspect]
     Indication: DYSPNOEA
     Dosage: 25/400MG,EVERY 4-6 HOURS
     Dates: start: 20130202, end: 20130202
  2. RAMIPRIL [Suspect]
     Indication: HYPERTENSION
     Dosage: UNK,1X/DAY
  3. METOPROLOL TARTRATE [Suspect]
     Indication: HYPERTENSION
     Dosage: UNK,2X/DAY
  4. PLAVIX [Concomitant]
     Indication: MYOCARDIAL INFARCTION
     Dosage: UNK,1X/DAY
  5. PRAVASTATIN [Concomitant]
     Indication: BLOOD CHOLESTEROL INCREASED
     Dosage: UNK,1X/DAY

REACTIONS (2)
  - Apparent death [Unknown]
  - Blood pressure increased [Unknown]
